FAERS Safety Report 20131780 (Version 4)
Quarter: 2022Q1

REPORT INFORMATION
  Report Type: Report from Study
  Country: US (occurrence: US)
  Receive Date: 20211130
  Receipt Date: 20220107
  Transmission Date: 20220423
  Serious: No
  Sender: FDA-Public Use
  Company Number: US-NOVARTISTESTPH-NVSC2021US272443

PATIENT
  Sex: Female

DRUGS (2)
  1. ENTRESTO [Suspect]
     Active Substance: SACUBITRIL\VALSARTAN
     Indication: Product used for unknown indication
     Dosage: 1 DOSAGE FORM, BID
     Route: 065
     Dates: start: 202110
  2. PLAVIX [Concomitant]
     Active Substance: CLOPIDOGREL BISULFATE
     Indication: Product used for unknown indication
     Dosage: UNK
     Route: 065

REACTIONS (9)
  - Anaemia [Unknown]
  - Oropharyngeal pain [Unknown]
  - Abdominal discomfort [Recovering/Resolving]
  - Rotator cuff syndrome [Unknown]
  - Arthralgia [Unknown]
  - Salt craving [Unknown]
  - Swelling [Unknown]
  - Hypotension [Unknown]
  - Fatigue [Unknown]
